FAERS Safety Report 8406705-X (Version None)
Quarter: 2012Q2

REPORT INFORMATION
  Report Type: 
  Country: None (occurrence: None)
  Receive Date: 20120604
  Receipt Date: 20120529
  Transmission Date: 20120825
  Serious: Yes (Hospitalization)
  Sender: FDA-Public Use
  Company Number: PHHO2012KR007043

PATIENT
  Sex: Male
  Weight: 62.1 kg

DRUGS (3)
  1. PRANDIN [Concomitant]
     Indication: IMMUNOSUPPRESSION
     Dosage: 12 MG, QD
     Route: 048
     Dates: start: 20120405
  2. MYCOPHENOLIC ACID [Suspect]
     Indication: RENAL TRANSPLANT
     Dosage: 1440 MG, UNK
     Route: 048
     Dates: start: 20120202, end: 20120422
  3. NEORAL [Suspect]
     Indication: RENAL TRANSPLANT
     Dosage: 100 MG, QD
     Route: 048
     Dates: start: 20120131

REACTIONS (2)
  - NEPHROPATHY TOXIC [None]
  - URINARY TRACT INFECTION [None]
